FAERS Safety Report 6026574-5 (Version None)
Quarter: 2008Q4

REPORT INFORMATION
  Report Type: 
  Country: None (occurrence: None)
  Receive Date: 20081231
  Receipt Date: 20081216
  Transmission Date: 20090506
  Serious: Yes (Other)
  Sender: FDA-Public Use
  Company Number: KV200801174

PATIENT
  Age: 32 Year
  Sex: Male
  Weight: 95.2 kg

DRUGS (6)
  1. MORPHINE SULFATE [Suspect]
     Indication: PAIN
     Dosage: 15 MG, TID, ORAL
     Route: 048
     Dates: start: 20020101, end: 20080401
  2. METOPROLOL TARTRATE [Concomitant]
  3. LISINOPRIL [Concomitant]
  4. DIGOXIN [Concomitant]
  5. DIAZEPAM [Concomitant]
  6. WARFARIN SODIUM [Concomitant]

REACTIONS (3)
  - LETHARGY [None]
  - OVERDOSE [None]
  - PRODUCT QUALITY ISSUE [None]
